FAERS Safety Report 7064806-5 (Version None)
Quarter: 2010Q4

REPORT INFORMATION
  Report Type: 
  Country: None (occurrence: None)
  Receive Date: 20101027
  Receipt Date: 20101022
  Transmission Date: 20110411
  Serious: Yes (Death, Hospitalization)
  Sender: FDA-Public Use
  Company Number: JP-SANOFI-AVENTIS-2010SA064675

PATIENT
  Age: 75 Year
  Sex: Female
  Weight: 51 kg

DRUGS (18)
  1. PLAVIX [Suspect]
     Indication: ANGINA UNSTABLE
     Route: 048
     Dates: start: 20090717, end: 20100407
  2. PLETAL [Suspect]
     Indication: TRANSIENT ISCHAEMIC ATTACK
     Route: 048
     Dates: start: 20100402, end: 20100405
  3. WARFARIN SODIUM [Suspect]
     Route: 048
     Dates: start: 20100405, end: 20100407
  4. ASPIRIN [Concomitant]
     Indication: CEREBRAL INFARCTION
     Route: 048
     Dates: start: 20050722
  5. CANDESARTAN CILEXETIL [Concomitant]
     Indication: HYPERTENSION
     Route: 048
     Dates: start: 20030612, end: 20100407
  6. ARTIST [Concomitant]
     Indication: HYPERTENSION
     Route: 048
     Dates: start: 20040928, end: 20100407
  7. TAKEPRON [Concomitant]
     Indication: REFLUX OESOPHAGITIS
     Route: 048
     Dates: start: 20060508, end: 20100407
  8. CRESTOR [Concomitant]
     Route: 048
     Dates: start: 20090718, end: 20100407
  9. SIGMART [Concomitant]
     Indication: ANGINA UNSTABLE
     Route: 048
     Dates: start: 20090718, end: 20100407
  10. AMLODIPINE [Concomitant]
     Indication: HYPERTENSION
     Route: 048
     Dates: start: 20080806, end: 20100407
  11. HEPARIN SODIUM [Concomitant]
     Indication: ANGINA UNSTABLE
     Dosage: DOSE:10000 UNIT(S)
     Route: 041
     Dates: start: 20100405, end: 20100407
  12. HERBESSER ^TANABE^ [Concomitant]
     Route: 041
     Dates: start: 20100406, end: 20100407
  13. BOSMIN [Concomitant]
     Indication: PRODUCT USED FOR UNKNOWN INDICATION
     Dosage: 27 TIMES/DAY
     Route: 051
     Dates: start: 20100407, end: 20100407
  14. LOXOPROFEN [Concomitant]
     Indication: PRODUCT USED FOR UNKNOWN INDICATION
     Dosage: 8 TIMES IN TOTAL
     Route: 048
     Dates: start: 20100401, end: 20100407
  15. ATROPINE SULFATE [Concomitant]
     Indication: PRODUCT USED FOR UNKNOWN INDICATION
     Route: 051
     Dates: start: 20100407, end: 20100407
  16. CALCICOL [Concomitant]
     Indication: PRODUCT USED FOR UNKNOWN INDICATION
     Route: 051
     Dates: start: 20100407, end: 20100407
  17. MEYLON [Concomitant]
     Indication: PRODUCT USED FOR UNKNOWN INDICATION
     Route: 051
     Dates: start: 20100407, end: 20100407
  18. MYSLEE [Concomitant]
     Indication: INSOMNIA
     Dosage: WHEN INSOMNIA OCCURRED; 2 TIMES IN TOTAL
     Route: 048
     Dates: start: 20100401, end: 20100406

REACTIONS (2)
  - AORTIC DISSECTION [None]
  - TRANSIENT ISCHAEMIC ATTACK [None]
